FAERS Safety Report 14830399 (Version 1)
Quarter: 2018Q2

REPORT INFORMATION
  Report Type: Spontaneous
  Country: US (occurrence: US)
  Receive Date: 20180430
  Receipt Date: 20180430
  Transmission Date: 20180711
  Serious: No
  Sender: FDA-Public Use
  Company Number: US-SA-2018SA059495

PATIENT
  Age: 75 Year
  Sex: Female

DRUGS (11)
  1. PARICALCITOL. [Concomitant]
     Active Substance: PARICALCITOL
  2. GABAPENTIN. [Concomitant]
     Active Substance: GABAPENTIN
  3. ALIROCUMAB PREFILLED PEN [Suspect]
     Active Substance: ALIROCUMAB
     Indication: BLOOD CHOLESTEROL INCREASED
     Dates: start: 201801
  4. LISINOPRIL. [Concomitant]
     Active Substance: LISINOPRIL
  5. PRALUENT [Suspect]
     Active Substance: ALIROCUMAB
     Indication: BLOOD CHOLESTEROL INCREASED
     Dosage: DOSE:75 MILLIGRAM(S)/MILLILITRE
     Route: 058
     Dates: start: 201801
  6. HUMALOG [Concomitant]
     Active Substance: INSULIN LISPRO
  7. ATENOLOL. [Concomitant]
     Active Substance: ATENOLOL
  8. DULOXETINE. [Concomitant]
     Active Substance: DULOXETINE
  9. ASPIRIN. [Concomitant]
     Active Substance: ASPIRIN
  10. SYNTHROID [Concomitant]
     Active Substance: LEVOTHYROXINE SODIUM
  11. ULORIC [Concomitant]
     Active Substance: FEBUXOSTAT

REACTIONS (6)
  - Blood glucose increased [Not Recovered/Not Resolved]
  - Injection site bruising [Not Recovered/Not Resolved]
  - Device issue [Unknown]
  - Influenza [Unknown]
  - Vascular injury [Not Recovered/Not Resolved]
  - Drug dose omission [Unknown]

NARRATIVE: CASE EVENT DATE: 2018
